FAERS Safety Report 9770015 (Version 2)
Quarter: 2013Q4

REPORT INFORMATION
  Report Type: Spontaneous
  Country: US (occurrence: US)
  Receive Date: 20131218
  Receipt Date: 20131218
  Transmission Date: 20140711
  Serious: No
  Sender: FDA-Public Use
  Company Number: US-VERTEX PHARMACEUTICALS INC-AE-2011-000763

PATIENT
  Age: 58 Year
  Sex: Female

DRUGS (6)
  1. INCIVEK [Suspect]
     Indication: HEPATITIS C
     Dates: start: 20110804
  2. PEGYLATED INTERFERON [Concomitant]
     Indication: HEPATITIS C
     Dates: start: 20110804
  3. RIBAPAK [Concomitant]
     Indication: HEPATITIS C
     Dates: start: 20110804
  4. PERCOCET [Concomitant]
     Indication: BACK PAIN
  5. XANAX [Concomitant]
  6. FIORICET [Concomitant]

REACTIONS (2)
  - Visual impairment [Recovered/Resolved]
  - Abnormal sensation in eye [Recovered/Resolved]
